FAERS Safety Report 9219249 (Version 2)
Quarter: 2013Q2

REPORT INFORMATION
  Report Type: Report from Study
  Country: US (occurrence: US)
  Receive Date: 20130409
  Receipt Date: 20130418
  Transmission Date: 20140414
  Serious: Yes (Other)
  Sender: FDA-Public Use
  Company Number: US-VERTEX PHARMACEUTICALS INC.-2013-004561

PATIENT
  Sex: Male
  Weight: 105 kg

DRUGS (8)
  1. NADOLOL [Concomitant]
     Dosage: 60 MG, QD
  2. FLUOCINONIDE [Concomitant]
     Dosage: 0.05 %, UNK
     Route: 061
  3. VX-950 (TELAPREVIR) [Suspect]
     Indication: HEPATITIS C
     Dosage: 750 MG, TID
     Route: 048
     Dates: start: 201212
  4. PEGASYS [Suspect]
     Indication: HEPATITIS C
     Dosage: 180 ?G, QW
     Route: 058
     Dates: start: 201212
  5. PEGASYS [Suspect]
     Dosage: 90 ?G, QW
     Route: 058
  6. RIBASPHERE [Suspect]
     Indication: HEPATITIS C
     Dosage: 600 MG, BID
     Route: 048
     Dates: start: 201212
  7. FERROUS SULFATE [Concomitant]
  8. MULTIVITAMINS [Concomitant]

REACTIONS (4)
  - Pancytopenia [Unknown]
  - Thrombocytopenia [Unknown]
  - Rash [Unknown]
  - Pruritus [Unknown]
